FAERS Safety Report 17105913 (Version 1)
Quarter: 2019Q4

REPORT INFORMATION
  Report Type: Spontaneous
  Country: SE (occurrence: SE)
  Receive Date: 20191203
  Receipt Date: 20191203
  Transmission Date: 20200122
  Serious: Yes (Hospitalization)
  Sender: FDA-Public Use
  Company Number: SE-PFIZER INC-2019521658

PATIENT
  Age: 23 Year
  Sex: Female

DRUGS (5)
  1. VENLAFAXINE HCL [Suspect]
     Active Substance: VENLAFAXINE HYDROCHLORIDE
     Dosage: UNK, SINGLE
     Route: 048
     Dates: start: 20180215, end: 20180215
  2. PROPAVAN [Suspect]
     Active Substance: PROPIOMAZINE
     Dosage: UNK, SINGLE
     Route: 048
     Dates: start: 20180215, end: 20180215
  3. ELVANSE [Suspect]
     Active Substance: LISDEXAMFETAMINE DIMESYLATE
     Dosage: UNK, SINGLE
     Route: 048
     Dates: start: 20180215, end: 20180215
  4. STESOLID [Suspect]
     Active Substance: DIAZEPAM
     Dosage: UNK, SINGLE
     Route: 048
     Dates: start: 20180215, end: 20180215
  5. LERGIGAN [PROMETHAZINE HYDROCHLORIDE] [Suspect]
     Active Substance: PROMETHAZINE HYDROCHLORIDE
     Dosage: UNK, SINGLE
     Route: 048
     Dates: start: 20180215, end: 20180215

REACTIONS (6)
  - Intentional overdose [Unknown]
  - Somnolence [Unknown]
  - Anxiety [Unknown]
  - Tachycardia [Unknown]
  - Agitation [Unknown]
  - Intentional self-injury [Unknown]

NARRATIVE: CASE EVENT DATE: 20180215
